FAERS Safety Report 15775874 (Version 1)
Quarter: 2018Q4

REPORT INFORMATION
  Report Type: Spontaneous
  Country: US (occurrence: US)
  Receive Date: 20181231
  Receipt Date: 20181231
  Transmission Date: 20190205
  Serious: No
  Sender: FDA-Public Use
  Company Number: US-009507513-1812USA002808

PATIENT

DRUGS (1)
  1. DULERA [Suspect]
     Active Substance: FORMOTEROL FUMARATE DIHYDRATE\MOMETASONE FUROATE
     Dosage: ONE 200/5 MCRG PUFF
     Route: 048

REACTIONS (4)
  - No adverse event [Unknown]
  - Poor quality device used [Unknown]
  - Incorrect dose administered [Unknown]
  - Product quality issue [Unknown]
